FAERS Safety Report 21723258 (Version 1)
Quarter: 2022Q4

REPORT INFORMATION
  Report Type: Spontaneous
  Country: IT (occurrence: IT)
  Receive Date: 20221213
  Receipt Date: 20221213
  Transmission Date: 20230112
  Serious: Yes (Other)
  Sender: FDA-Public Use
  Company Number: IT-AMGEN-ITASP2022213002

PATIENT
  Age: 17 Year
  Sex: Male

DRUGS (1)
  1. BLINCYTO [Suspect]
     Active Substance: BLINATUMOMAB
     Indication: Acute lymphocytic leukaemia
     Dosage: 15 MICROGRAM/SQUARE METER/KILOGRAM/28 DAYS
     Route: 065

REACTIONS (4)
  - Acute lymphocytic leukaemia [Unknown]
  - Graft versus host disease in liver [Unknown]
  - Therapy non-responder [Unknown]
  - Minimal residual disease [Not Recovered/Not Resolved]
